FAERS Safety Report 10121129 (Version 2)
Quarter: 2014Q2

REPORT INFORMATION
  Report Type: Spontaneous
  Country: US (occurrence: US)
  Receive Date: 20140425
  Receipt Date: 20140429
  Transmission Date: 20141212
  Serious: Yes (Other)
  Sender: FDA-Public Use
  Company Number: US-ABBVIE-14P-163-1228287-00

PATIENT
  Sex: Female
  Weight: 65.83 kg

DRUGS (5)
  1. SYNTHROID [Suspect]
     Indication: HYPOTHYROIDISM
     Dates: start: 1999, end: 2012
  2. SYNTHROID [Suspect]
     Indication: HYPOTHYROIDISM
     Route: 048
     Dates: start: 2003, end: 20140219
  3. SYNTHROID [Suspect]
     Indication: HYPOTHYROIDISM
     Dosage: TABLET 6 DAYS DAILY, 1/2 PILL 7TH DAY OF THE WEEK
     Route: 048
     Dates: start: 20140219
  4. UNKNOWN HEART MEDICATION [Suspect]
     Indication: ATRIAL FIBRILLATION
  5. MULTIVITAMIN [Concomitant]
     Indication: VITAMIN SUPPLEMENTATION

REACTIONS (9)
  - Atrial fibrillation [Recovered/Resolved]
  - Weight increased [Not Recovered/Not Resolved]
  - Alopecia [Not Recovered/Not Resolved]
  - Blood magnesium decreased [Not Recovered/Not Resolved]
  - Vitamin D decreased [Not Recovered/Not Resolved]
  - Atrial flutter [Recovered/Resolved]
  - Palpitations [Unknown]
  - Atrioventricular block [Unknown]
  - Malaise [Unknown]
